FAERS Safety Report 9306216 (Version 3)
Quarter: 2014Q1

REPORT INFORMATION
  Report Type: Report from Study
  Country: JP (occurrence: JP)
  Receive Date: 20130523
  Receipt Date: 20140305
  Transmission Date: 20141002
  Serious: Yes (Hospitalization, Other)
  Sender: FDA-Public Use
  Company Number: JP-VERTEX PHARMACEUTICALS INC-AE-2012-007028

PATIENT
  Age: 71 Year
  Sex: Male

DRUGS (8)
  1. VX-950 (TELAPREVIR) [Suspect]
     Indication: CHRONIC HEPATITIS C
     Dosage: 2250 MG, QD
     Route: 048
     Dates: start: 20120306, end: 20120410
  2. VX-950 (TELAPREVIR) [Suspect]
     Dosage: 1500 MG, QD
     Route: 048
     Dates: start: 20120411, end: 20120429
  3. REBETOL [Suspect]
     Indication: CHRONIC HEPATITIS C
     Dosage: 600 MG, UNK
     Route: 048
     Dates: start: 20120305, end: 20120319
  4. REBETOL [Suspect]
     Dosage: 400 MG, UNK
     Route: 048
     Dates: start: 20120320, end: 20120429
  5. REBETOL [Suspect]
     Dosage: 400 MG, UNK
     Route: 048
     Dates: start: 20120517, end: 20120523
  6. REBETOL [Suspect]
     Dosage: 600 MG, UNK
     Route: 048
     Dates: start: 20120524
  7. PEGINTERFERON ALFA-2B [Suspect]
     Indication: CHRONIC HEPATITIS C
     Dosage: 1.2 ?G/KG, QW
     Route: 058
     Dates: start: 20120305, end: 20120429
  8. PEGINTERFERON ALFA-2B [Suspect]
     Dosage: 1.2 ?G/KG, UNK
     Route: 058
     Dates: start: 20120517

REACTIONS (2)
  - Rash [Recovering/Resolving]
  - Erythema multiforme [Recovering/Resolving]
